FAERS Safety Report 18887962 (Version 2)
Quarter: 2021Q1

REPORT INFORMATION
  Report Type: Spontaneous
  Country: DE (occurrence: DE)
  Receive Date: 20210212
  Receipt Date: 20210218
  Transmission Date: 20210420
  Serious: Yes (Other)
  Sender: FDA-Public Use
  Company Number: DE-ASTRAZENECA-2021A029752

PATIENT

DRUGS (11)
  1. QUETIAPINE. [Suspect]
     Active Substance: QUETIAPINE
     Indication: SCHIZOAFFECTIVE DISORDER
     Dosage: 1000 MG PER DAY
     Route: 064
  2. MIDAZOLAM. [Suspect]
     Active Substance: MIDAZOLAM
     Indication: SEIZURE
     Dosage: 1.5 MG
     Route: 064
  3. DIAZEPAM. [Suspect]
     Active Substance: DIAZEPAM
     Indication: SCHIZOAFFECTIVE DISORDER
     Dosage: 30 MG PER DAY
     Route: 064
  4. RISPERIDONE. [Suspect]
     Active Substance: RISPERIDONE
     Indication: SCHIZOAFFECTIVE DISORDER
     Dosage: 7 MG PER DAY
     Route: 064
  5. SUCCINYLCHOLINE [Suspect]
     Active Substance: SUCCINYLCHOLINE
     Dosage: 1.5 MG/KG
     Route: 064
  6. METHOHEXITAL [Suspect]
     Active Substance: METHOHEXITAL
     Indication: ANAESTHESIA
     Dosage: 1 MG/KG
     Route: 064
  7. GLYCOPYRRONIUM BROMIDE [Suspect]
     Active Substance: GLYCOPYRRONIUM
     Indication: PROPHYLAXIS
     Dosage: 0.2 MG
     Route: 064
  8. SODIUM CITRATE. [Suspect]
     Active Substance: SODIUM CITRATE
     Dosage: 30 ML (0.3 MOLAR)
     Route: 064
  9. METHOHEXITAL [Suspect]
     Active Substance: METHOHEXITAL
     Indication: ANAESTHESIA
     Dosage: 1.6 MG/KG
     Route: 042
  10. QUETIAPINE. [Suspect]
     Active Substance: QUETIAPINE
     Indication: SCHIZOAFFECTIVE DISORDER
     Dosage: 700 MG PER DAY
     Route: 064
  11. BETAMETHASON [Suspect]
     Active Substance: BETAMETHASONE
     Indication: SCHIZOAFFECTIVE DISORDER
     Route: 064

REACTIONS (2)
  - Bradycardia foetal [Recovered/Resolved]
  - Foetal exposure during pregnancy [Unknown]
